FAERS Safety Report 16329869 (Version 1)
Quarter: 2019Q2

REPORT INFORMATION
  Report Type: Spontaneous
  Country: DE (occurrence: DE)
  Receive Date: 20190520
  Receipt Date: 20190520
  Transmission Date: 20190711
  Serious: Yes (Other)
  Sender: FDA-Public Use
  Company Number: DE-009507513-1905DEU008244

PATIENT
  Sex: Male

DRUGS (1)
  1. XELEVIA [Suspect]
     Active Substance: SITAGLIPTIN PHOSPHATE
     Indication: DIABETES MELLITUS
     Dosage: TABLET 25MG 1 A DAY
     Route: 048

REACTIONS (1)
  - Coma hepatic [Unknown]
